FAERS Safety Report 12692925 (Version 1)
Quarter: 2016Q3

REPORT INFORMATION
  Report Type: Spontaneous
  Country: US (occurrence: US)
  Receive Date: 20160829
  Receipt Date: 20160829
  Transmission Date: 20161109
  Serious: Yes (Hospitalization, Other)
  Sender: FDA-Public Use
  Company Number: US-BRISTOL-MYERS SQUIBB COMPANY-BMS-2016-069240

PATIENT
  Sex: Female

DRUGS (2)
  1. ELIQUIS [Suspect]
     Active Substance: APIXABAN
     Indication: PULMONARY EMBOLISM
     Dosage: 5 MG, BID
     Route: 048
  2. ELIQUIS [Suspect]
     Active Substance: APIXABAN
     Indication: DEEP VEIN THROMBOSIS
     Dosage: 5 MG, QID
     Route: 048
     Dates: start: 201506

REACTIONS (7)
  - Fatigue [Unknown]
  - Neoplasm malignant [Unknown]
  - Surgery [Unknown]
  - Cerebrovascular accident [Unknown]
  - Tooth extraction [Unknown]
  - Vertigo [Unknown]
  - Off label use [Unknown]
